FAERS Safety Report 12631548 (Version 2)
Quarter: 2016Q3

REPORT INFORMATION
  Report Type: Spontaneous
  Country: US (occurrence: US)
  Receive Date: 20160808
  Receipt Date: 20160808
  Transmission Date: 20161109
  Serious: No
  Sender: FDA-Public Use
  Company Number: US-BEH-2015054588

PATIENT
  Sex: Male
  Weight: 78 kg

DRUGS (27)
  1. PROLASTIN [Concomitant]
     Active Substance: .ALPHA.1-PROTEINASE INHIBITOR HUMAN
  2. TEMAZEPAM. [Concomitant]
     Active Substance: TEMAZEPAM
  3. LEVOTHYROXINE. [Concomitant]
     Active Substance: LEVOTHYROXINE
  4. PROVENTIL [Concomitant]
     Active Substance: ALBUTEROL
  5. FLECAINIDE [Concomitant]
     Active Substance: FLECAINIDE
  6. METOCLOPRAMIDE. [Concomitant]
     Active Substance: METOCLOPRAMIDE
  7. TUMS [Concomitant]
     Active Substance: CALCIUM CARBONATE
  8. DIPHENHYDRAMINE. [Concomitant]
     Active Substance: DIPHENHYDRAMINE
  9. LMX [Concomitant]
     Active Substance: LIDOCAINE
  10. SPIRIVA [Concomitant]
     Active Substance: TIOTROPIUM BROMIDE MONOHYDRATE
  11. VITAMIN D3 [Concomitant]
     Active Substance: CHOLECALCIFEROL
  12. HIZENTRA [Suspect]
     Active Substance: HUMAN IMMUNOGLOBULIN G
     Indication: HYPOGAMMAGLOBULINAEMIA
     Route: 058
  13. ALBUTEROL. [Concomitant]
     Active Substance: ALBUTEROL
  14. XOPENEX [Concomitant]
     Active Substance: LEVALBUTEROL HYDROCHLORIDE
  15. SERTRALINE [Concomitant]
     Active Substance: SERTRALINE HYDROCHLORIDE
  16. ASPIRIN. [Concomitant]
     Active Substance: ASPIRIN
  17. ATORVASTATIN [Concomitant]
     Active Substance: ATORVASTATIN
  18. OMEPRAZOLE. [Concomitant]
     Active Substance: OMEPRAZOLE
  19. FENOFIBRATE. [Concomitant]
     Active Substance: FENOFIBRATE
  20. EPIPEN [Concomitant]
     Active Substance: EPINEPHRINE
  21. FLOVENT [Concomitant]
     Active Substance: FLUTICASONE PROPIONATE
  22. AZELASTINE [Concomitant]
     Active Substance: AZELASTINE
  23. FLONASE [Concomitant]
     Active Substance: FLUTICASONE PROPIONATE
  24. CHOLECALCIFEROL [Concomitant]
     Active Substance: CHOLECALCIFEROL
  25. IBUPROFEN. [Concomitant]
     Active Substance: IBUPROFEN
  26. MONTELUKAST [Concomitant]
     Active Substance: MONTELUKAST SODIUM
  27. CIPROFLOXACIN. [Concomitant]
     Active Substance: CIPROFLOXACIN

REACTIONS (2)
  - Erythema [Unknown]
  - Headache [Unknown]
